FAERS Safety Report 6912966-6 (Version None)
Quarter: 2010Q3

REPORT INFORMATION
  Report Type: 
  Country: None (occurrence: None)
  Receive Date: 20100806
  Receipt Date: 20090422
  Transmission Date: 20110219
  Serious: No
  Sender: FDA-Public Use
  Company Number: US-PFIZER INC-2009200839

PATIENT
  Sex: Female

DRUGS (2)
  1. VFEND [Suspect]
     Indication: PULMONARY MYCOSIS
     Dosage: 400 MG, 1X/DAY
     Dates: start: 20090101
  2. METHOTREXATE [Concomitant]
     Dosage: UNK

REACTIONS (4)
  - CHROMATOPSIA [None]
  - PHOTOPHOBIA [None]
  - PHOTOPSIA [None]
  - VISION BLURRED [None]
